FAERS Safety Report 5914373-1 (Version None)
Quarter: 2008Q4

REPORT INFORMATION
  Report Type: 
  Country: None (occurrence: None)
  Receive Date: 20081007
  Receipt Date: 20080924
  Transmission Date: 20090506
  Serious: Yes (Hospitalization)
  Sender: FDA-Public Use
  Company Number: SPV1-2008-02065

PATIENT
  Age: 39 Year
  Sex: Female
  Weight: 64.4 kg

DRUGS (3)
  1. ADDERALL XR 10 [Suspect]
     Indication: ATTENTION DEFICIT/HYPERACTIVITY DISORDER
     Dosage: SEE IMAGE
     Route: 048
     Dates: start: 20061201, end: 20070101
  2. ADDERALL XR 10 [Suspect]
     Indication: ATTENTION DEFICIT/HYPERACTIVITY DISORDER
     Dosage: SEE IMAGE
     Route: 048
     Dates: start: 20070101, end: 20070201
  3. ADDERALL XR 10 [Suspect]
     Indication: ATTENTION DEFICIT/HYPERACTIVITY DISORDER
     Dosage: SEE IMAGE
     Route: 048
     Dates: start: 20071001

REACTIONS (8)
  - ALOPECIA [None]
  - CAESAREAN SECTION [None]
  - INTRA-ABDOMINAL HAEMATOMA [None]
  - OVERDOSE [None]
  - POSTOPERATIVE WOUND COMPLICATION [None]
  - PREGNANCY [None]
  - PSORIASIS [None]
  - SUTURE RUPTURE [None]
